FAERS Safety Report 6963866-7 (Version None)
Quarter: 2010Q3

REPORT INFORMATION
  Report Type: 
  Country: None (occurrence: None)
  Receive Date: 20100830
  Receipt Date: 20100818
  Transmission Date: 20110219
  Serious: Yes (Life-Threatening)
  Sender: FDA-Public Use
  Company Number: GB-DEXPHARM-20101255

PATIENT
  Age: 76 Year
  Sex: Male

DRUGS (10)
  1. CHLORHEXIDINE GLUCONATE [Suspect]
     Indication: PREOPERATIVE CARE
     Dates: start: 20090908, end: 20090908
  2. CEFUROXIME [Concomitant]
  3. FELODIPINE [Concomitant]
  4. FENTANYL CITRATE [Concomitant]
  5. OMEPRAZOLE [Concomitant]
  6. PROPOFOL [Concomitant]
  7. RAMIPRIL [Concomitant]
  8. ROCURONIUM BROMIDE [Concomitant]
  9. SIMVASTATIN [Concomitant]
  10. SOTALOL HCL [Concomitant]

REACTIONS (1)
  - ANAPHYLACTIC REACTION [None]
